FAERS Safety Report 8439471-2 (Version None)
Quarter: 2012Q2

REPORT INFORMATION
  Report Type: 
  Country: None (occurrence: None)
  Receive Date: 20120615
  Receipt Date: 20120605
  Transmission Date: 20120825
  Serious: Yes (Other)
  Sender: FDA-Public Use
  Company Number: US-JNJFOC-20120603611

PATIENT
  Sex: Male

DRUGS (4)
  1. PREDNISONE [Concomitant]
     Route: 048
  2. REMICADE [Suspect]
     Indication: RHEUMATOID ARTHRITIS
     Dosage: THERAPY DURATION OF FIVE PLUS YEARS
     Route: 042
     Dates: end: 20120101
  3. PLAQUENIL [Concomitant]
     Route: 048
  4. ARAVA [Concomitant]
     Route: 048

REACTIONS (2)
  - PROSTATE CANCER [None]
  - PNEUMONIA CRYPTOCOCCAL [None]
